FAERS Safety Report 7255996-X (Version None)
Quarter: 2011Q1

REPORT INFORMATION
  Report Type: 
  Country: None (occurrence: None)
  Receive Date: 20110129
  Receipt Date: 20100517
  Transmission Date: 20110831
  Serious: No
  Sender: FDA-Public Use
  Company Number: US-ABBOTT-10P-163-0646168-00

PATIENT
  Age: 63 Year
  Sex: Female

DRUGS (3)
  1. HUMIRA [Suspect]
     Dosage: 4- 40 MG HELD
     Dates: start: 20100122, end: 20100122
  2. UNKNOWN HIGH BLOOD PRESSURE MEDICATION (NON-ABBOTT) [Suspect]
     Indication: HYPERTENSION
     Dates: end: 20100201
  3. HUMIRA [Suspect]
     Indication: RHEUMATOID ARTHRITIS
     Dates: start: 20100201, end: 20100401

REACTIONS (4)
  - RASH [None]
  - ERYTHEMA [None]
  - ANGIOEDEMA [None]
  - LEUKOCYTOCLASTIC VASCULITIS [None]
